FAERS Safety Report 7557212-8 (Version None)
Quarter: 2011Q2

REPORT INFORMATION
  Report Type: 
  Country: None (occurrence: None)
  Receive Date: 20110620
  Receipt Date: 20100825
  Transmission Date: 20111010
  Serious: No
  Sender: FDA-Public Use
  Company Number: US-MYLANLABS-2010S1015774

PATIENT
  Age: 79 Year
  Sex: Female

DRUGS (4)
  1. SIMVASTATIN [Concomitant]
  2. PERFOROMIST [Suspect]
     Indication: EMPHYSEMA
     Route: 055
     Dates: start: 20100701
  3. ASPIRIN [Concomitant]
  4. DYAZIDE [Concomitant]

REACTIONS (1)
  - ABDOMINAL PAIN [None]
